FAERS Safety Report 18585169 (Version 1)
Quarter: 2020Q4

REPORT INFORMATION
  Report Type: Spontaneous
  Country: US (occurrence: US)
  Receive Date: 20201204
  Receipt Date: 20201204
  Transmission Date: 20210114
  Serious: Yes (Hospitalization)
  Sender: FDA-Public Use
  Company Number: None

PATIENT
  Age: 67 Year
  Sex: Female
  Weight: 80.55 kg

DRUGS (6)
  1. PIQRAY [Suspect]
     Active Substance: ALPELISIB
     Indication: BREAST CANCER FEMALE
     Route: 048
     Dates: start: 20201006
  2. LOW DOSE ASPIRIN 81 MG, ORAL [Concomitant]
  3. VANCOCIN 250 MG, ORAL [Concomitant]
  4. FULVESTRANT 250 MG/5 ML, IM [Concomitant]
  5. RENA-VITE, ORAL [Concomitant]
  6. CYMBALTA 30 MG, ORAL [Concomitant]

REACTIONS (1)
  - Hospitalisation [None]

NARRATIVE: CASE EVENT DATE: 20201204
